FAERS Safety Report 4401664-9 (Version None)
Quarter: 2004Q3

REPORT INFORMATION
  Report Type: 
  Country: None (occurrence: None)
  Receive Date: 20040719
  Receipt Date: 20040708
  Transmission Date: 20050211
  Serious: Yes (Other)
  Sender: FDA-Public Use
  Company Number: DE-ROCHE-373856

PATIENT
  Sex: Female

DRUGS (1)
  1. ROFERON-A [Suspect]
     Indication: BENIGN HEPATIC NEOPLASM
     Route: 065

REACTIONS (1)
  - HEPATIC NEOPLASM MALIGNANT [None]
